FAERS Safety Report 5781228-5 (Version None)
Quarter: 2008Q2

REPORT INFORMATION
  Report Type: 
  Country: None (occurrence: None)
  Receive Date: 20080618
  Receipt Date: 20080605
  Transmission Date: 20081010
  Serious: Yes (Death)
  Sender: FDA-Public Use
  Company Number: 2008AL006670

PATIENT
  Sex: Female

DRUGS (1)
  1. DIGOXIN [Suspect]
     Indication: ARRHYTHMIA
     Dates: start: 20080101, end: 20080319

REACTIONS (3)
  - ANOREXIA [None]
  - FEELING ABNORMAL [None]
  - NAUSEA [None]
